FAERS Safety Report 5875557-4 (Version None)
Quarter: 2008Q3

REPORT INFORMATION
  Report Type: 
  Country: None (occurrence: None)
  Receive Date: 20080909
  Receipt Date: 20080829
  Transmission Date: 20090109
  Serious: Yes (Other)
  Sender: FDA-Public Use
  Company Number: JP-SANOFI-SYNTHELABO-A01200810670

PATIENT
  Age: 50 Year
  Sex: Female

DRUGS (2)
  1. EBRANTIL [Suspect]
     Indication: DRUG USE FOR UNKNOWN INDICATION
     Dosage: UNK
     Route: 048
     Dates: end: 20080709
  2. MYSLEE [Suspect]
     Indication: INSOMNIA
     Route: 048
     Dates: start: 20080601, end: 20080709

REACTIONS (2)
  - HEPATOCELLULAR INJURY [None]
  - MALAISE [None]
